FAERS Safety Report 9206562 (Version 1)
Quarter: 2013Q1

REPORT INFORMATION
  Report Type: Spontaneous
  Country: US (occurrence: None)
  Receive Date: 20120709
  Receipt Date: 20120709
  Transmission Date: 20140127
  Serious: Yes (Hospitalization, Other)
  Sender: FDA-Public Use
  Company Number: PHHY2011US62999

PATIENT
  Age: 65 Year
  Sex: Male

DRUGS (1)
  1. GLEEVEC (IMATINIB) UNKNOWN [Suspect]
     Indication: GASTROINTESTINAL STROMAL TUMOUR
     Route: 048
     Dates: start: 200909, end: 201002

REACTIONS (7)
  - Blood calcium increased [None]
  - Neoplasm progression [None]
  - Renal failure [None]
  - Hepatic failure [None]
  - Malaise [None]
  - Metastases to kidney [None]
  - Metastases to liver [None]
